FAERS Safety Report 6665427-6 (Version None)
Quarter: 2010Q1

REPORT INFORMATION
  Report Type: 
  Country: None (occurrence: None)
  Receive Date: 20100323
  Receipt Date: 20091214
  Transmission Date: 20100710
  Serious: Yes (Other)
  Sender: FDA-Public Use
  Company Number: 091215-0001227

PATIENT
  Age: 12 Year
  Sex: Female

DRUGS (6)
  1. SABRIL [Suspect]
     Indication: CONVULSION
     Dosage: 2250 MG; BID; PO
     Route: 048
     Dates: start: 20091211
  2. FELBATOL [Concomitant]
  3. KEPPRA [Concomitant]
  4. LORAZEPAM [Concomitant]
  5. MIRALAX [Concomitant]
  6. CLOBAZAM [Concomitant]

REACTIONS (1)
  - CONVULSION [None]
